FAERS Safety Report 21178693 (Version 1)
Quarter: 2022Q3

REPORT INFORMATION
  Report Type: Report from Study
  Country: US (occurrence: US)
  Receive Date: 20220805
  Receipt Date: 20220805
  Transmission Date: 20221026
  Serious: Yes (Other)
  Sender: FDA-Public Use
  Company Number: US-JAZZ-2022-US-016454

PATIENT
  Sex: Female

DRUGS (4)
  1. XYREM [Suspect]
     Active Substance: SODIUM OXYBATE
     Indication: Narcolepsy
     Route: 048
  2. RITALIN [Concomitant]
     Active Substance: METHYLPHENIDATE HYDROCHLORIDE
     Indication: Product used for unknown indication
     Dosage: UNK
     Dates: start: 20180701
  3. SUNOSI [Concomitant]
     Active Substance: SOLRIAMFETOL
     Indication: Product used for unknown indication
     Dosage: UNK
     Dates: start: 20220406
  4. AZITHROMYCIN [Concomitant]
     Active Substance: AZITHROMYCIN
     Indication: Product used for unknown indication
     Dosage: UNK
     Dates: start: 20220301

REACTIONS (12)
  - Loss of consciousness [Unknown]
  - Monoplegia [Unknown]
  - Blood pressure abnormal [Unknown]
  - Polycystic ovaries [Unknown]
  - Central nervous system lesion [Unknown]
  - Endometriosis [Unknown]
  - Neoplasm [Unknown]
  - Sinusitis [Unknown]
  - Arthritis [Unknown]
  - Sedation [Unknown]
  - Anxiety [Unknown]
  - Hypersensitivity [Unknown]
